FAERS Safety Report 6400000-6 (Version None)
Quarter: 2009Q4

REPORT INFORMATION
  Report Type: 
  Country: None (occurrence: None)
  Receive Date: 20091014
  Receipt Date: 20091002
  Transmission Date: 20100525
  Serious: Yes (Other)
  Sender: FDA-Public Use
  Company Number: US-ELI_LILLY_AND_COMPANY-US200910000718

PATIENT
  Sex: Female

DRUGS (5)
  1. HUMALOG [Suspect]
     Dates: end: 20080101
  2. HUMALOG [Suspect]
     Dates: start: 20080101
  3. HUMALOG MIX 75/25 [Suspect]
     Dates: start: 20080101
  4. HUMALOG MIX 75/25 [Suspect]
     Dates: start: 20080101
  5. PROTONIX [Concomitant]

REACTIONS (18)
  - ARTHRITIS [None]
  - CONTUSION [None]
  - DEVICE MISUSE [None]
  - FALL [None]
  - HAND FRACTURE [None]
  - INJECTION SITE PAIN [None]
  - INJECTION SITE SWELLING [None]
  - INJURY [None]
  - INTRAOCULAR LENS IMPLANT [None]
  - IRRITABILITY [None]
  - JOINT INJURY [None]
  - MUSCLE RUPTURE [None]
  - ROAD TRAFFIC ACCIDENT [None]
  - VEIN DISORDER [None]
  - VENOUS INJURY [None]
  - VISION BLURRED [None]
  - VISUAL IMPAIRMENT [None]
  - WRONG TECHNIQUE IN DRUG USAGE PROCESS [None]
